FAERS Safety Report 7209849-3 (Version None)
Quarter: 2011Q1

REPORT INFORMATION
  Report Type: 
  Country: None (occurrence: None)
  Receive Date: 20110104
  Receipt Date: 20101223
  Transmission Date: 20110831
  Serious: Yes (Life-Threatening, Hospitalization)
  Sender: FDA-Public Use
  Company Number: DE-AMGEN-DEUCT2010009010

PATIENT

DRUGS (6)
  1. CIPRALEX [Concomitant]
     Indication: DEPRESSION
     Dosage: 10 MG, UNK
  2. ENBREL [Suspect]
     Indication: ANKYLOSING SPONDYLITIS
     Dosage: 25 MG, 2X/WEEK
     Route: 058
     Dates: start: 20100310, end: 20101101
  3. ENBREL [Suspect]
     Indication: POLYARTHRITIS
  4. METFORMIN [Concomitant]
     Dosage: UNK
  5. METFORMIN [Concomitant]
     Dosage: UNK
  6. METFORMIN [Concomitant]
     Indication: TYPE 2 DIABETES MELLITUS

REACTIONS (3)
  - FATIGUE [None]
  - WEIGHT DECREASED [None]
  - RENAL CELL CARCINOMA [None]
